FAERS Safety Report 4755931-X (Version None)
Quarter: 2005Q3

REPORT INFORMATION
  Report Type: 
  Country: None (occurrence: None)
  Receive Date: 20050830
  Receipt Date: 20050823
  Transmission Date: 20060218
  Serious: Yes (Death)
  Sender: FDA-Public Use
  Company Number: GB-JNJFOC-20040600686

PATIENT
  Age: 60 Year
  Sex: Female

DRUGS (4)
  1. REMICADE [Suspect]
     Route: 042
  2. REMICADE [Suspect]
     Indication: RHEUMATOID ARTHRITIS
     Route: 042
  3. AZATHIOPRINE [Interacting]
     Indication: RHEUMATOID ARTHRITIS
     Route: 065
  4. PREDNISOLONE [Concomitant]

REACTIONS (2)
  - ALVEOLITIS FIBROSING [None]
  - DRUG INTERACTION [None]
